FAERS Safety Report 9716987 (Version 1)
Quarter: 2013Q4

REPORT INFORMATION
  Report Type: Spontaneous
  Country: US (occurrence: None)
  Receive Date: 20131125
  Receipt Date: 20131125
  Transmission Date: 20140711
  Serious: Yes (Other)
  Sender: FDA-Public Use
  Company Number: 2013P1021137

PATIENT
  Age: 25 Year
  Sex: Male

DRUGS (2)
  1. DIPHENHYDRAMINE [Suspect]
     Route: 048
  2. ACETAMINOPHEN [Suspect]
     Route: 048

REACTIONS (7)
  - Analgesic drug level increased [None]
  - Heart rate increased [None]
  - International normalised ratio increased [None]
  - Aspartate aminotransferase increased [None]
  - Unresponsive to stimuli [None]
  - Alanine aminotransferase increased [None]
  - Overdose [None]
